FAERS Safety Report 18825440 (Version 1)
Quarter: 2021Q1

REPORT INFORMATION
  Report Type: Spontaneous
  Country: JP (occurrence: JP)
  Receive Date: 20210201
  Receipt Date: 20210201
  Transmission Date: 20210419
  Serious: Yes (Hospitalization, Other)
  Sender: FDA-Public Use
  Company Number: JP-009507513-2102JPN000361

PATIENT
  Age: 9 Decade
  Sex: Male

DRUGS (14)
  1. GLACTIV [Suspect]
     Active Substance: SITAGLIPTIN
     Indication: TYPE 2 DIABETES MELLITUS
     Dosage: UNK
     Route: 048
     Dates: end: 20191107
  2. THYRADIN [Suspect]
     Active Substance: LEVOTHYROXINE
     Dosage: UNK
     Route: 048
     Dates: start: 20191108
  3. CRESTOR [Suspect]
     Active Substance: ROSUVASTATIN CALCIUM
     Dosage: UNK
     Route: 048
     Dates: start: 20191108
  4. GONAX [Suspect]
     Active Substance: DEGARELIX
     Dosage: 480 MG, EVERYDAY
     Route: 058
     Dates: start: 20191106, end: 20191106
  5. CRESTOR [Suspect]
     Active Substance: ROSUVASTATIN CALCIUM
     Indication: PRODUCT USED FOR UNKNOWN INDICATION
     Dosage: DATE OF LAST ADMINISTRATION: 07?NOV?2019
     Route: 048
  6. THYRADIN [Suspect]
     Active Substance: LEVOTHYROXINE
     Indication: PRODUCT USED FOR UNKNOWN INDICATION
     Dosage: DATE OF LAST ADMINISTRATION: 07?NOV?2019
     Route: 048
  7. SUREPOST [Suspect]
     Active Substance: REPAGLINIDE
     Indication: PRODUCT USED FOR UNKNOWN INDICATION
     Dosage: DATE OF LAST ADMINISTRATION: 07?NOV?2019
     Route: 048
  8. GLACTIV [Suspect]
     Active Substance: SITAGLIPTIN
     Dosage: UNK
     Route: 048
     Dates: start: 20191108
  9. GONAX [Suspect]
     Active Substance: DEGARELIX
     Indication: PRODUCT USED FOR UNKNOWN INDICATION
     Dosage: 80 MG, EVERYDAY
     Route: 058
  10. MICARDIS [Suspect]
     Active Substance: TELMISARTAN
     Dosage: UNK
     Route: 048
     Dates: start: 20191108
  11. XTANDI [Suspect]
     Active Substance: ENZALUTAMIDE
     Indication: PRODUCT USED FOR UNKNOWN INDICATION
     Dosage: 160 MG, EVERYDAY, DATE OF LAST ADMINISTRATION: 07?NOV?2019
     Route: 048
  12. XTANDI [Suspect]
     Active Substance: ENZALUTAMIDE
     Dosage: 160 MG, EVERYDAY
     Route: 048
     Dates: start: 20191108
  13. SUREPOST [Suspect]
     Active Substance: REPAGLINIDE
     Dosage: UNK
     Route: 048
     Dates: start: 20191108
  14. MICARDIS [Suspect]
     Active Substance: TELMISARTAN
     Indication: HYPERTENSION
     Dosage: UNK
     Route: 048
     Dates: end: 20191107

REACTIONS (4)
  - Pyrexia [Recovering/Resolving]
  - Pneumonia aspiration [Recovered/Resolved]
  - White blood cell count increased [Recovered/Resolved]
  - Platelet count decreased [Recovered/Resolved]

NARRATIVE: CASE EVENT DATE: 20191106
